FAERS Safety Report 11348538 (Version 1)
Quarter: 2015Q3

REPORT INFORMATION
  Report Type: Spontaneous
  Country: US (occurrence: US)
  Receive Date: 20150806
  Receipt Date: 20150806
  Transmission Date: 20151125
  Serious: Yes (Other)
  Sender: FDA-Public Use
  Company Number: US-PFIZER INC-2015252509

PATIENT
  Age: 67 Year
  Sex: Male
  Weight: 118 kg

DRUGS (1)
  1. INLYTA [Suspect]
     Active Substance: AXITINIB
     Indication: RENAL CELL CARCINOMA
     Dosage: 5 MG, 2X/DAY
     Route: 048

REACTIONS (4)
  - Disease progression [Unknown]
  - Renal cell carcinoma [Unknown]
  - Haemorrhage [Unknown]
  - Weight decreased [Unknown]
